FAERS Safety Report 4862578-3 (Version None)
Quarter: 2005Q4

REPORT INFORMATION
  Report Type: 
  Country: None (occurrence: None)
  Receive Date: 20051219
  Receipt Date: 20051219
  Transmission Date: 20060501
  Serious: No
  Sender: FDA-Public Use
  Company Number: None

PATIENT
  Sex: Female
  Weight: 61.2356 kg

DRUGS (1)
  1. EFFEXOR [Suspect]
     Indication: DEPRESSION
     Dosage: 37.5MG ONCE DAILY  PO
     Route: 048
     Dates: start: 20030917, end: 20031020

REACTIONS (7)
  - DEAFNESS BILATERAL [None]
  - EAR DISORDER [None]
  - EFFUSION [None]
  - ELECTRIC SHOCK [None]
  - PARAESTHESIA [None]
  - TINNITUS [None]
  - VERTIGO [None]
